FAERS Safety Report 4950144-0 (Version None)
Quarter: 2006Q1

REPORT INFORMATION
  Report Type: 
  Country: None (occurrence: None)
  Receive Date: 20060315
  Receipt Date: 20060310
  Transmission Date: 20060701
  Serious: Yes (Death, Hospitalization)
  Sender: FDA-Public Use
  Company Number: 200610235BFR

PATIENT
  Age: 63 Year
  Sex: Male

DRUGS (5)
  1. MOXIFLOXACIN HYDROCHLORIDE [Suspect]
     Indication: BRONCHITIS
     Dosage: 400 MG, ORAL
     Route: 048
     Dates: end: 20060131
  2. CORDARONE [Suspect]
     Dosage: ORAL
     Route: 048
     Dates: end: 20060131
  3. FUNGIZONE [Suspect]
     Dosage: ORAL
     Route: 048
     Dates: end: 20060131
  4. PREVISCAN (FLUINDIONE) [Suspect]
     Dosage: ORAL
     Route: 048
     Dates: end: 20060131
  5. PREDNISOLONE [Suspect]
     Dosage: ORAL
     Route: 048
     Dates: end: 20060131

REACTIONS (10)
  - BRONCHITIS [None]
  - CHLAMYDIAL INFECTION [None]
  - CYTOMEGALOVIRUS INFECTION [None]
  - EOSINOPHIL COUNT DECREASED [None]
  - EPSTEIN-BARR VIRUS INFECTION [None]
  - HERPES SIMPLEX [None]
  - LUNG DISORDER [None]
  - STEVENS-JOHNSON SYNDROME [None]
  - THERAPY NON-RESPONDER [None]
  - TOXIC EPIDERMAL NECROLYSIS [None]
